FAERS Safety Report 5283386-8 (Version None)
Quarter: 2007Q2

REPORT INFORMATION
  Report Type: 
  Country: None (occurrence: None)
  Receive Date: 20070402
  Receipt Date: 20070319
  Transmission Date: 20071010
  Serious: Yes (Other)
  Sender: FDA-Public Use
  Company Number: US-JNJFOC-20070307268

PATIENT
  Sex: Female
  Weight: 82.1 kg

DRUGS (13)
  1. REMICADE [Suspect]
     Route: 042
  2. REMICADE [Suspect]
     Route: 042
  3. REMICADE [Suspect]
     Route: 042
  4. REMICADE [Suspect]
     Route: 042
  5. REMICADE [Suspect]
     Route: 042
  6. REMICADE [Suspect]
     Route: 042
  7. REMICADE [Suspect]
     Route: 042
  8. REMICADE [Suspect]
     Indication: RHEUMATOID ARTHRITIS
     Route: 042
  9. DARVOCET [Concomitant]
  10. ALEVE [Concomitant]
  11. MULTI-VITAMIN [Concomitant]
  12. TRINESSA [Concomitant]
  13. MSM/GLUCOSAMINE [Concomitant]

REACTIONS (1)
  - PSORIASIS [None]
